FAERS Safety Report 9423935 (Version 2)
Quarter: 2013Q4

REPORT INFORMATION
  Report Type: Spontaneous
  Country: US (occurrence: US)
  Receive Date: 20130729
  Receipt Date: 20131104
  Transmission Date: 20140711
  Serious: No
  Sender: FDA-Public Use
  Company Number: US-BIOGENIDEC-2013BI066255

PATIENT
  Sex: Female

DRUGS (6)
  1. TYSABRI [Suspect]
     Indication: MULTIPLE SCLEROSIS
     Route: 042
  2. TYSABRI [Suspect]
     Indication: MULTIPLE SCLEROSIS
     Route: 042
     Dates: start: 20100519, end: 20121215
  3. TYSABRI [Suspect]
     Indication: MULTIPLE SCLEROSIS
     Route: 042
     Dates: start: 20130727
  4. AVONEX [Concomitant]
     Indication: MULTIPLE SCLEROSIS
     Route: 030
  5. AVONEX [Concomitant]
     Indication: MULTIPLE SCLEROSIS
     Route: 030
  6. AUBAGIO [Concomitant]

REACTIONS (13)
  - Mental impairment [Unknown]
  - Visual impairment [Unknown]
  - Mobility decreased [Unknown]
  - Dysphagia [Unknown]
  - General physical health deterioration [Unknown]
  - Frustration [Recovered/Resolved]
  - Fear [Recovered/Resolved]
  - Agraphia [Recovered/Resolved]
  - Musculoskeletal disorder [Recovered/Resolved]
  - Cognitive disorder [Not Recovered/Not Resolved]
  - Coordination abnormal [Not Recovered/Not Resolved]
  - Loss of control of legs [Recovered/Resolved]
  - Asthenia [Recovered/Resolved]
